FAERS Safety Report 7011368-4 (Version None)
Quarter: 2010Q3

REPORT INFORMATION
  Report Type: 
  Country: None (occurrence: None)
  Receive Date: 20100922
  Receipt Date: 20100922
  Transmission Date: 20110219
  Serious: Yes (Disabling)
  Sender: FDA-Public Use
  Company Number: None

PATIENT
  Sex: Female
  Weight: 68.0396 kg

DRUGS (2)
  1. LAMICTAL [Suspect]
     Indication: BIPOLAR DISORDER
     Dosage: UNKNOWN QD ORAL
     Route: 048
     Dates: start: 20060101
  2. LAMICTAL [Suspect]
     Indication: BIPOLAR DISORDER
     Dosage: UNKNOWN QD ORAL
     Route: 048
     Dates: start: 20070101

REACTIONS (10)
  - BALANCE DISORDER [None]
  - COORDINATION ABNORMAL [None]
  - EAR PAIN [None]
  - GASTROINTESTINAL PAIN [None]
  - HEADACHE [None]
  - INSOMNIA [None]
  - IRRITABILITY [None]
  - MUSCLE SPASMS [None]
  - MUSCULOSKELETAL STIFFNESS [None]
  - TREMOR [None]
